FAERS Safety Report 15304750 (Version 4)
Quarter: 2018Q3

REPORT INFORMATION
  Report Type: Report from Study
  Country: MX (occurrence: MX)
  Receive Date: 20180821
  Receipt Date: 20180914
  Transmission Date: 20181010
  Serious: Yes (Hospitalization)
  Sender: FDA-Public Use
  Company Number: MX-AMGEN-MEXCT2018115429

PATIENT
  Age: 61 Year
  Sex: Female
  Weight: 63 kg

DRUGS (10)
  1. FOLIVITAL [Concomitant]
     Indication: RHEUMATOID ARTHRITIS
     Dosage: 4 MG
     Dates: start: 2004
  2. ETANERCEPT [Suspect]
     Active Substance: ETANERCEPT
     Indication: RHEUMATOID ARTHRITIS
     Dosage: 50 MG, WEEKLY
     Route: 058
     Dates: start: 20161201, end: 20180614
  3. METICORTEN [Concomitant]
     Active Substance: PREDNISONE
     Indication: RHEUMATOID ARTHRITIS
     Dosage: 5 MG
     Route: 048
     Dates: start: 2004, end: 201807
  4. FLOTAC [Concomitant]
     Active Substance: DICLOFENAC SODIUM
     Indication: RHEUMATOID ARTHRITIS
     Dosage: 140 MG
     Dates: start: 2016, end: 20180702
  5. AAS PROTECT [Concomitant]
     Active Substance: ASPIRIN
     Indication: PERIPHERAL VENOUS DISEASE
     Dosage: 100 MG, DAILY
     Dates: start: 2014, end: 20180702
  6. XERENEX [Concomitant]
     Indication: DEPRESSION
     Dosage: 20 MG, 1X/DAY
     Dates: start: 201801, end: 20180702
  7. CALTRATE 600+D [Concomitant]
     Indication: OSTEOPOROSIS
     Dosage: 1X/DAY
     Dates: start: 2012
  8. TRIXILEM /00113801/ [Concomitant]
     Indication: RHEUMATOID ARTHRITIS
  9. TRIXILEM [Concomitant]
     Indication: RHEUMATOID ARTHRITIS
     Dosage: 10 MG, WEEKLY
     Route: 048
     Dates: start: 2004, end: 20180616
  10. LOSARTAN POTASSIUM. [Concomitant]
     Active Substance: LOSARTAN POTASSIUM
     Indication: HYPERTENSION
     Dosage: 50 MG, 2X/DAY

REACTIONS (1)
  - Venous thrombosis limb [Recovered/Resolved]
